FAERS Safety Report 5146090-2 (Version None)
Quarter: 2006Q4

REPORT INFORMATION
  Report Type: 
  Country: None (occurrence: None)
  Receive Date: 20061108
  Receipt Date: 20061031
  Transmission Date: 20070319
  Serious: Yes (Other)
  Sender: FDA-Public Use
  Company Number: 2006UW21052

PATIENT
  Age: 78 Year
  Sex: Female

DRUGS (4)
  1. ATACAND [Suspect]
     Route: 048
  2. NORVASC [Suspect]
     Route: 048
  3. LISINOPRIL [Concomitant]
     Route: 048
  4. OCTREOTIDE ACETATE [Concomitant]

REACTIONS (8)
  - BLOOD PRESSURE INCREASED [None]
  - DIZZINESS [None]
  - HEPATIC NEOPLASM [None]
  - ILL-DEFINED DISORDER [None]
  - MALAISE [None]
  - NAUSEA [None]
  - OEDEMA PERIPHERAL [None]
  - SOMNOLENCE [None]
